FAERS Safety Report 8406597-9 (Version None)
Quarter: 2012Q2

REPORT INFORMATION
  Report Type: 
  Country: None (occurrence: None)
  Receive Date: 20120604
  Receipt Date: 20120528
  Transmission Date: 20120825
  Serious: Yes (Hospitalization)
  Sender: FDA-Public Use
  Company Number: CA-B.I. PHARMACEUTICALS,INC./RIDGEFIELD-2012-CN-01123CN

PATIENT
  Age: 71 Year
  Sex: Male

DRUGS (2)
  1. DIABETIC MEDICATION [Concomitant]
     Indication: TYPE 2 DIABETES MELLITUS
  2. SPIRIVA [Suspect]
     Indication: CHRONIC OBSTRUCTIVE PULMONARY DISEASE
     Dosage: 18 MCG
     Route: 055

REACTIONS (1)
  - ARTERIAL OCCLUSIVE DISEASE [None]
